FAERS Safety Report 5452338-7 (Version None)
Quarter: 2007Q3

REPORT INFORMATION
  Report Type: 
  Country: None (occurrence: None)
  Receive Date: 20070912
  Receipt Date: 20070912
  Transmission Date: 20080115
  Serious: Yes (Disabling)
  Sender: FDA-Public Use
  Company Number: None

PATIENT
  Age: 79 Year
  Sex: Male

DRUGS (1)
  1. PHOSPHOSODA FLAVOR NOT SPECIFIED [Suspect]
     Indication: COLONOSCOPY
     Dosage: PO
     Route: 048
     Dates: start: 20070116, end: 20070116

REACTIONS (5)
  - DIALYSIS [None]
  - DRUG TOXICITY [None]
  - ECONOMIC PROBLEM [None]
  - INJURY [None]
  - RENAL FAILURE [None]
